FAERS Safety Report 24638585 (Version 1)
Quarter: 2024Q4

REPORT INFORMATION
  Report Type: Spontaneous
  Country: BR (occurrence: BR)
  Receive Date: 20241119
  Receipt Date: 20241119
  Transmission Date: 20250114
  Serious: Yes (Hospitalization)
  Sender: DAIICHI
  Company Number: BR-DSJP-DS-2024-107255-BR

PATIENT
  Age: 92 Year
  Sex: Female
  Weight: 40 kg

DRUGS (5)
  1. EDOXABAN TOSYLATE [Suspect]
     Active Substance: EDOXABAN TOSYLATE
     Indication: Hypercoagulation
     Dosage: UNK
     Route: 065
     Dates: start: 2020
  2. EDOXABAN TOSYLATE [Suspect]
     Active Substance: EDOXABAN TOSYLATE
     Indication: Hypercoagulation
     Dosage: 1 DOSAGE FORM,  QD (1 TABLET 1X AT NIGHT)
     Route: 048
     Dates: start: 202408
  3. LASIX [Concomitant]
     Active Substance: FUROSEMIDE
     Indication: Prophylaxis
     Dosage: UNK (12 MONTHS AGO)
     Route: 048
  4. BISOPROLOL FUMARATE [Concomitant]
     Active Substance: BISOPROLOL FUMARATE
     Indication: Product used for unknown indication
     Dosage: UNK
     Route: 065
     Dates: start: 202408
  5. ENTRESTO [Concomitant]
     Active Substance: SACUBITRIL\VALSARTAN
     Indication: Cardiac disorder
     Dosage: UNK (ALL HER LIFE)
     Route: 065

REACTIONS (6)
  - Pneumonia [Recovered/Resolved]
  - Weight decreased [Unknown]
  - Thrombosis [Recovering/Resolving]
  - Weight decreased [Unknown]
  - Epistaxis [Recovering/Resolving]
  - Wrong technique in product usage process [Unknown]

NARRATIVE: CASE EVENT DATE: 20241001
